FAERS Safety Report 6690297-X (Version None)
Quarter: 2010Q2

REPORT INFORMATION
  Report Type: 
  Country: None (occurrence: None)
  Receive Date: 20100421
  Receipt Date: 20100315
  Transmission Date: 20101027
  Serious: Yes (Hospitalization)
  Sender: FDA-Public Use
  Company Number: PHHY2010MX23938

PATIENT
  Age: 68 Year
  Sex: Male

DRUGS (1)
  1. ZOMETA [Suspect]
     Dosage: 4 MG , VIAL
     Route: 042
     Dates: start: 20090601, end: 20100301

REACTIONS (8)
  - ABASIA [None]
  - APHONIA [None]
  - ARTHRALGIA [None]
  - BLOOD GLUCOSE INCREASED [None]
  - EATING DISORDER [None]
  - METASTASIS [None]
  - ORAL DISCOMFORT [None]
  - PNEUMONIA [None]
